FAERS Safety Report 11507261 (Version 1)
Quarter: 2015Q3

REPORT INFORMATION
  Report Type: Report from Study
  Country: BR (occurrence: BR)
  Receive Date: 20150915
  Receipt Date: 20150915
  Transmission Date: 20151125
  Serious: Yes (Hospitalization, Other)
  Sender: FDA-Public Use
  Company Number: BR-ABBVIE-15K-020-1462116-00

PATIENT
  Age: 48 Year
  Sex: Male
  Weight: 66 kg

DRUGS (10)
  1. HUMIRA [Suspect]
     Active Substance: ADALIMUMAB
     Indication: RHEUMATOID ARTHRITIS
     Route: 058
     Dates: start: 20141107, end: 20150801
  2. PREDNISONE. [Suspect]
     Active Substance: PREDNISONE
     Dosage: USED 10MG/DAY DURING LONG TIME
     Route: 065
  3. PARACETAMOL [Concomitant]
     Active Substance: ACETAMINOPHEN
     Indication: PAIN
     Dosage: EVERY 8 HOURS, WHEN NEEDED
     Route: 048
  4. PREDNISONE. [Suspect]
     Active Substance: PREDNISONE
     Route: 065
  5. RECONTER [Concomitant]
     Active Substance: ESCITALOPRAM OXALATE
     Indication: DEPRESSION
     Route: 048
     Dates: start: 201403
  6. PREDNISONE. [Suspect]
     Active Substance: PREDNISONE
     Indication: PRODUCT USED FOR UNKNOWN INDICATION
     Route: 065
  7. PREDNISONE. [Suspect]
     Active Substance: PREDNISONE
     Route: 065
  8. DICLOFENAC [Concomitant]
     Active Substance: DICLOFENAC
     Indication: PAIN
     Dosage: EVERY 8 HOURS, WHEN NEEDED
     Route: 048
     Dates: start: 2014
  9. HUMIRA [Suspect]
     Active Substance: ADALIMUMAB
     Route: 058
     Dates: start: 20150908
  10. PREDNISONE. [Suspect]
     Active Substance: PREDNISONE
     Dosage: 2-3 DAYS
     Route: 065
     Dates: end: 201508

REACTIONS (7)
  - Groin pain [Recovered/Resolved]
  - Fatigue [Recovered/Resolved]
  - Arterial occlusive disease [Unknown]
  - Peripheral swelling [Recovered/Resolved]
  - Thrombosis [Recovered/Resolved]
  - Night sweats [Recovered/Resolved]
  - Peripheral swelling [Recovering/Resolving]

NARRATIVE: CASE EVENT DATE: 201508
